FAERS Safety Report 12013005 (Version 8)
Quarter: 2016Q2

REPORT INFORMATION
  Report Type: Spontaneous
  Country: US (occurrence: US)
  Receive Date: 20160205
  Receipt Date: 20160620
  Transmission Date: 20160815
  Serious: Yes (Other)
  Sender: FDA-Public Use
  Company Number: US-PFIZER INC-2016064167

PATIENT
  Age: 74 Year
  Sex: Female
  Weight: 103.4 kg

DRUGS (20)
  1. IBRANCE [Suspect]
     Active Substance: PALBOCICLIB
     Indication: BREAST CANCER METASTATIC
     Dosage: 125 MG, CYCLIC, (DAY 1-21 EVERY 28 DAYS)
     Route: 048
     Dates: start: 20160119, end: 201602
  2. ATENOLOL. [Concomitant]
     Active Substance: ATENOLOL
     Dosage: UNK
  3. CALCIUM [Concomitant]
     Active Substance: CALCIUM
     Dosage: UNK
  4. IBRANCE [Suspect]
     Active Substance: PALBOCICLIB
     Dosage: 125 MG, CYCLIC, (DAY 1-21 EVERY 28 DAYS)
     Route: 048
     Dates: start: 20160223
  5. DULOXETINE. [Concomitant]
     Active Substance: DULOXETINE
     Dosage: UNK
  6. ATIVAN [Concomitant]
     Active Substance: LORAZEPAM
     Dosage: UNK
  7. XALATAN [Concomitant]
     Active Substance: LATANOPROST
     Dosage: UNK (0.00590 EYE GTTS)
  8. LOVENOX [Concomitant]
     Active Substance: ENOXAPARIN SODIUM
     Dosage: UNK
  9. DEXAMETHASONE. [Concomitant]
     Active Substance: DEXAMETHASONE
     Dosage: UNK
  10. LETROZOLE. [Concomitant]
     Active Substance: LETROZOLE
  11. IBRANCE [Suspect]
     Active Substance: PALBOCICLIB
     Dosage: 125 MG, CYCLIC, (1 CAP D1- D21 Q28D)
     Route: 048
     Dates: start: 20160119
  12. AMLODIPINE [Concomitant]
     Active Substance: AMLODIPINE BESYLATE
     Dosage: UNK
  13. TRAMADOL. [Concomitant]
     Active Substance: TRAMADOL
     Dosage: UNK
  14. AMBIEN [Concomitant]
     Active Substance: ZOLPIDEM TARTRATE
     Dosage: UNK
  15. FEMARA [Concomitant]
     Active Substance: LETROZOLE
     Dosage: UNK, 1X/DAY
  16. IBRANCE [Suspect]
     Active Substance: PALBOCICLIB
     Dosage: UNK
  17. IBRANCE [Suspect]
     Active Substance: PALBOCICLIB
     Dosage: UNK
  18. LASIX [Concomitant]
     Active Substance: FUROSEMIDE
     Dosage: UNK
  19. GABAPENTIN. [Concomitant]
     Active Substance: GABAPENTIN
     Dosage: UNK
  20. ULTRAM [Concomitant]
     Active Substance: TRAMADOL HYDROCHLORIDE
     Dosage: UNK

REACTIONS (15)
  - Increased appetite [Unknown]
  - Abdominal pain upper [Unknown]
  - Balance disorder [Unknown]
  - Nerve injury [Unknown]
  - Vision blurred [Unknown]
  - Dizziness [Unknown]
  - Disease progression [Unknown]
  - White blood cell count decreased [Recovering/Resolving]
  - Breast cancer metastatic [Unknown]
  - Fatigue [Recovering/Resolving]
  - Back pain [Unknown]
  - Neutropenia [Recovered/Resolved]
  - Malaise [Unknown]
  - Asthenia [Unknown]
  - Vomiting [Unknown]

NARRATIVE: CASE EVENT DATE: 201602
